FAERS Safety Report 18998538 (Version 1)
Quarter: 2021Q1

REPORT INFORMATION
  Report Type: Spontaneous
  Country: US (occurrence: US)
  Receive Date: 20210311
  Receipt Date: 20210311
  Transmission Date: 20210420
  Serious: Yes (Hospitalization)
  Sender: FDA-Public Use
  Company Number: NVSC2021US053612

PATIENT
  Age: 25 Year
  Sex: Female

DRUGS (7)
  1. CEFAZOLIN [Concomitant]
     Active Substance: CEFAZOLIN
     Indication: INFECTION PROPHYLAXIS
     Dosage: UNK
     Route: 065
  2. ERTAPENEM. [Concomitant]
     Active Substance: ERTAPENEM SODIUM
     Indication: INFECTION PROPHYLAXIS
     Dosage: UNK
     Route: 065
  3. VANCOMYCIN [Suspect]
     Active Substance: VANCOMYCIN
     Dosage: 3.5 G, QD
     Route: 042
  4. TOBRAMYCIN. [Suspect]
     Active Substance: TOBRAMYCIN
     Indication: INFECTION PROPHYLAXIS
     Dosage: 2.4 G, UNKNOWN
     Route: 065
  5. VANCOMYCIN [Suspect]
     Active Substance: VANCOMYCIN
     Indication: INFECTION PROPHYLAXIS
     Dosage: 2 G, UNKNOWN
     Route: 065
  6. CEFTRIAXONE. [Concomitant]
     Active Substance: CEFTRIAXONE
     Indication: INFECTION PROPHYLAXIS
     Dosage: 2 G, QD
     Route: 042
  7. METRONIDAZOLE. [Concomitant]
     Active Substance: METRONIDAZOLE
     Indication: INFECTION PROPHYLAXIS
     Dosage: 500 MG, Q8H
     Route: 048

REACTIONS (2)
  - Septic shock [Recovering/Resolving]
  - Acute generalised exanthematous pustulosis [Recovering/Resolving]
